FAERS Safety Report 19812594 (Version 1)
Quarter: 2021Q3

REPORT INFORMATION
  Report Type: Report from Study
  Country: US (occurrence: US)
  Receive Date: 20210910
  Receipt Date: 20210910
  Transmission Date: 20211014
  Serious: Yes (Hospitalization, Other)
  Sender: FDA-Public Use
  Company Number: US-BRISTOL-MYERS SQUIBB COMPANY-BMS-2021-087822

PATIENT
  Age: 80 Year
  Sex: Female
  Weight: 74.1 kg

DRUGS (4)
  1. TYLENOL [Concomitant]
     Active Substance: ACETAMINOPHEN
     Indication: PRODUCT USED FOR UNKNOWN INDICATION
     Route: 065
  2. APIXABAN [Suspect]
     Active Substance: APIXABAN
     Indication: EMBOLISM VENOUS
     Dosage: 2.5 OR 5 MG TWICE DAILY
     Route: 048
     Dates: start: 20201125, end: 20210401
  3. GAVISCON [CALCIUM CARBONATE;SODIUM ALGINATE] [Concomitant]
     Active Substance: CALCIUM CARBONATE\SODIUM ALGINATE
     Indication: PRODUCT USED FOR UNKNOWN INDICATION
     Route: 048
  4. APIXABAN [Suspect]
     Active Substance: APIXABAN
     Dosage: 2.5 OR 5 MG TWICE DAILY
     Route: 048
     Dates: start: 20210410

REACTIONS (10)
  - Acute kidney injury [Unknown]
  - Eructation [Unknown]
  - Pleural effusion [Recovering/Resolving]
  - Nausea [Recovered/Resolved]
  - Constipation [Recovering/Resolving]
  - Vomiting [Unknown]
  - Cancer pain [Recovered/Resolved]
  - Atelectasis [Unknown]
  - Pulmonary oedema [Unknown]
  - Hydronephrosis [Recovering/Resolving]

NARRATIVE: CASE EVENT DATE: 20210304
